FAERS Safety Report 8267456-8 (Version None)
Quarter: 2012Q2

REPORT INFORMATION
  Report Type: 
  Country: None (occurrence: None)
  Receive Date: 20120405
  Receipt Date: 20120405
  Transmission Date: 20120825
  Serious: Yes (Hospitalization)
  Sender: FDA-Public Use
  Company Number: None

PATIENT
  Age: 29 Year
  Sex: Male
  Weight: 71.2147 kg

DRUGS (2)
  1. PREGABALIN [Suspect]
     Indication: ALCOHOLISM
     Dosage: 300MG, 150MG, 2X/DAY, ORAL
     Route: 048
     Dates: start: 20120227, end: 20120401
  2. DULOXETINE HYDROCHLORIDE [Suspect]
     Indication: ALCOHOLISM
     Dosage: 40 MG, 20MG, 2X/DAY, ORAL
     Route: 048
     Dates: start: 20120227, end: 20120401

REACTIONS (2)
  - SPINAL FRACTURE [None]
  - ACCIDENT [None]
